FAERS Safety Report 7555871-7 (Version None)
Quarter: 2011Q2

REPORT INFORMATION
  Report Type: 
  Country: None (occurrence: None)
  Receive Date: 20110618
  Receipt Date: 20081001
  Transmission Date: 20111010
  Serious: Yes (Hospitalization, Other)
  Sender: FDA-Public Use
  Company Number: US-BAYER-2010-002055

PATIENT
  Age: 66 Year
  Sex: Male
  Weight: 73 kg

DRUGS (19)
  1. TRASYLOL [Suspect]
     Indication: CORONARY ARTERY BYPASS
     Dosage: 200CC IV OVER 30MIN FOLLOWED BY 50CC/HR INFUSION
     Route: 042
     Dates: start: 19981021, end: 19981022
  2. HYTRIN [Concomitant]
     Dosage: 5 MG, QD
     Route: 048
     Dates: start: 19790101
  3. LIDOCAINE [Concomitant]
     Dosage: 200 MG, UNK
     Route: 042
     Dates: start: 19981021
  4. DOXEPIN [Concomitant]
     Indication: NIGHTMARE
     Dosage: 50 MG, QD
     Route: 048
     Dates: start: 19790101
  5. ALPRAZOLAM [Concomitant]
     Indication: ANXIETY
     Dosage: 0.25 MG, TID AS NEEDED
     Route: 048
     Dates: start: 19790101
  6. DOPAMINE HCL [Concomitant]
     Dosage: 3.0 MICROGRAM/KILOGRAM/MINUTE
     Route: 042
     Dates: start: 19981021
  7. ANCEF [Concomitant]
     Dosage: 1 UNK, UNK
     Route: 042
     Dates: start: 19981021
  8. ATENOLOL [Concomitant]
     Indication: HYPERTENSION
     Dosage: 100 MG, QD
     Route: 048
     Dates: start: 19790101
  9. NITROL [Concomitant]
     Dosage: 1 INCH
  10. ESMOLOL [Concomitant]
     Dosage: 2.5 MG TIMES 2
     Dates: start: 19981021
  11. OMNIPAQUE 140 [Concomitant]
     Dosage: 145 ML, UNK
     Dates: start: 19981015
  12. HEPARIN [Concomitant]
     Dosage: 5000UNITS
     Route: 042
     Dates: start: 19981014
  13. LIDOCAINE [Concomitant]
     Dosage: 50 MG BOLUS / 2MG/MINUTE INFUSION
     Route: 042
     Dates: start: 19981021
  14. PLAVIX [Concomitant]
     Dosage: 75 MG, UNK
     Route: 048
     Dates: start: 19981014
  15. LOPRESSOR [Concomitant]
     Dosage: 1 MG, UNK
     Route: 042
     Dates: start: 19981021
  16. IMDUR [Concomitant]
     Dosage: 120 MG, UNK
     Route: 048
     Dates: start: 19790101
  17. ACETYLSALICYLIC ACID SRT [Concomitant]
     Dosage: 81 MG, UNK
     Route: 048
     Dates: start: 19790101
  18. HEPARIN [Concomitant]
     Dosage: 23,000 UNITS
     Route: 042
     Dates: start: 19981021
  19. PROTAMINE SULFATE [Concomitant]
     Dosage: 560 MG, UNK
     Route: 042
     Dates: start: 19981021

REACTIONS (7)
  - PAIN [None]
  - ILL-DEFINED DISORDER [None]
  - CEREBROVASCULAR ACCIDENT [None]
  - INJURY [None]
  - ANXIETY [None]
  - EMOTIONAL DISTRESS [None]
  - GENERAL PHYSICAL HEALTH DETERIORATION [None]
